FAERS Safety Report 21343847 (Version 3)
Quarter: 2022Q4

REPORT INFORMATION
  Report Type: Spontaneous
  Country: US (occurrence: US)
  Receive Date: 20220916
  Receipt Date: 20221017
  Transmission Date: 20230112
  Serious: No
  Sender: FDA-Public Use
  Company Number: US-SA-SAC20220913000208

PATIENT
  Sex: Female

DRUGS (2)
  1. DUPIXENT [Suspect]
     Active Substance: DUPILUMAB
     Indication: Dermatitis atopic
     Dosage: 300 MG, QOW
     Route: 058
     Dates: start: 20210519
  2. PROGESTERONE [Suspect]
     Active Substance: PROGESTERONE
     Dosage: UNK

REACTIONS (7)
  - Swollen tongue [Unknown]
  - Chest discomfort [Unknown]
  - Ear discomfort [Unknown]
  - Pharyngeal swelling [Unknown]
  - Pruritus [Unknown]
  - Drug hypersensitivity [Unknown]
  - Hypersensitivity [Unknown]
